FAERS Safety Report 15345351 (Version 3)
Quarter: 2019Q3

REPORT INFORMATION
  Report Type: Spontaneous
  Country: JP (occurrence: JP)
  Receive Date: 20180903
  Receipt Date: 20190723
  Transmission Date: 20191004
  Serious: Yes (Death, Life-Threatening, Hospitalization, Other)
  Sender: FDA-Public Use
  Company Number: JP-ELI_LILLY_AND_COMPANY-JP201808003681

PATIENT
  Age: 67 Year
  Sex: Male
  Weight: 66 kg

DRUGS (10)
  1. ALDACTONE-A [Concomitant]
     Active Substance: SPIRONOLACTONE
     Indication: PRODUCT USED FOR UNKNOWN INDICATION
  2. VIBRAMYCINE [Concomitant]
     Indication: PRODUCT USED FOR UNKNOWN INDICATION
  3. ERBITUX [Suspect]
     Active Substance: CETUXIMAB
     Indication: HYPOPHARYNGEAL CANCER
     Dosage: 250 MG/M2, UNKNOWN
     Route: 041
     Dates: start: 201805
  4. CALONAL [Concomitant]
     Active Substance: ACETAMINOPHEN
     Indication: PRODUCT USED FOR UNKNOWN INDICATION
  5. ERBITUX [Suspect]
     Active Substance: CETUXIMAB
     Dosage: 400 MG/M2, UNK
     Route: 041
     Dates: start: 20180529, end: 20180529
  6. JUZENTAIHOTO [ANGELICA ACUTILOBA ROOT;ASTRAGA [Concomitant]
     Indication: PRODUCT USED FOR UNKNOWN INDICATION
  7. ERBITUX [Suspect]
     Active Substance: CETUXIMAB
     Dosage: 250 MG/M2, WEEKLY (1/W)
     Route: 041
     Dates: start: 20180605, end: 20180710
  8. URSODEOXYCHOLIC ACID [Concomitant]
     Active Substance: URSODIOL
     Indication: PRODUCT USED FOR UNKNOWN INDICATION
  9. TAKECAB [Concomitant]
     Active Substance: VONOPRAZAN FUMURATE
     Indication: PRODUCT USED FOR UNKNOWN INDICATION
  10. TRAMAL [Concomitant]
     Active Substance: TRAMADOL
     Indication: PRODUCT USED FOR UNKNOWN INDICATION

REACTIONS (8)
  - Interstitial lung disease [Fatal]
  - Hepatic cirrhosis [Unknown]
  - Acute kidney injury [Unknown]
  - Septic shock [Unknown]
  - Mucosal inflammation [Not Recovered/Not Resolved]
  - Multiple organ dysfunction syndrome [Unknown]
  - Radiation skin injury [Not Recovered/Not Resolved]
  - Disseminated intravascular coagulation [Unknown]

NARRATIVE: CASE EVENT DATE: 20180619
